FAERS Safety Report 14012844 (Version 1)
Quarter: 2017Q3

REPORT INFORMATION
  Report Type: Report from Study
  Country: VE (occurrence: VE)
  Receive Date: 20170926
  Receipt Date: 20170926
  Transmission Date: 20171128
  Serious: Yes (Other)
  Sender: FDA-Public Use
  Company Number: PHHY2017VE139381

PATIENT
  Sex: Female

DRUGS (4)
  1. ANASTROZOLE. [Concomitant]
     Active Substance: ANASTROZOLE
     Indication: PRODUCT USED FOR UNKNOWN INDICATION
     Dosage: UNK
     Route: 065
  2. ZOMETA [Suspect]
     Active Substance: ZOLEDRONIC ACID
     Indication: BREAST CANCER
     Dosage: 4 MG, MONTHLY
     Route: 065
     Dates: start: 20111110
  3. ZOMETA [Suspect]
     Active Substance: ZOLEDRONIC ACID
     Indication: BONE LESION
     Dosage: 4 MG, EVERY 3 MONTH
     Route: 065
  4. ZOMETA [Suspect]
     Active Substance: ZOLEDRONIC ACID
     Dosage: 4 MG, EVERY 6 MONTH
     Route: 065

REACTIONS (1)
  - Lung disorder [Unknown]
